FAERS Safety Report 14880138 (Version 2)
Quarter: 2020Q2

REPORT INFORMATION
  Report Type: Spontaneous
  Country: US (occurrence: US)
  Receive Date: 20180511
  Receipt Date: 20200520
  Transmission Date: 20200713
  Serious: No
  Sender: FDA-Public Use
  Company Number: US-CIPLA LTD.-2017US30386

PATIENT

DRUGS (3)
  1. TOPIRAMATE. [Suspect]
     Active Substance: TOPIRAMATE
     Indication: VERTIGO
     Dosage: 25 MG, BID
     Route: 065
  2. TOPIRAMATE. [Suspect]
     Active Substance: TOPIRAMATE
     Dosage: 100 MG, BID
     Route: 065
  3. TOPIRAMATE. [Suspect]
     Active Substance: TOPIRAMATE
     Dosage: 125 MG, BID
     Route: 065

REACTIONS (8)
  - Eating disorder [Unknown]
  - Dizziness [Unknown]
  - Fatigue [Unknown]
  - Visual impairment [Unknown]
  - Speech disorder [Unknown]
  - Memory impairment [Unknown]
  - Hypotension [Unknown]
  - Sleep disorder [Unknown]
